FAERS Safety Report 21676293 (Version 1)
Quarter: 2022Q4

REPORT INFORMATION
  Report Type: Spontaneous
  Country: US (occurrence: None)
  Receive Date: 20221202
  Receipt Date: 20221202
  Transmission Date: 20230112
  Serious: Yes (Other)
  Sender: FDA-Public Use
  Company Number: None

PATIENT
  Age: 58 Year
  Sex: Female
  Weight: 72 kg

DRUGS (1)
  1. PROLIA [Suspect]
     Active Substance: DENOSUMAB
     Indication: Osteoporosis
     Dosage: OTHER FREQUENCY : EVERY SIX MONTHS;?
     Route: 058
     Dates: start: 20220403, end: 20221003

REACTIONS (5)
  - Arthralgia [None]
  - Neck pain [None]
  - Dysphonia [None]
  - Oropharyngeal pain [None]
  - Sinusitis [None]

NARRATIVE: CASE EVENT DATE: 20221007
